FAERS Safety Report 6733843-X (Version None)
Quarter: 2010Q2

REPORT INFORMATION
  Report Type: 
  Country: None (occurrence: None)
  Receive Date: 20100520
  Receipt Date: 20100511
  Transmission Date: 20101027
  Serious: Yes (Death, Other)
  Sender: FDA-Public Use
  Company Number: US-ROCHE-692180

PATIENT
  Sex: Female

DRUGS (2)
  1. HERCEPTIN [Suspect]
     Route: 042
     Dates: start: 20090309
  2. PACLITAXEL [Suspect]
     Route: 042
     Dates: start: 20090309

REACTIONS (2)
  - MULTI-ORGAN FAILURE [None]
  - RESPIRATORY FAILURE [None]
